FAERS Safety Report 6074382-1 (Version None)
Quarter: 2009Q1

REPORT INFORMATION
  Report Type: 
  Country: None (occurrence: None)
  Receive Date: 20090206
  Receipt Date: 20090114
  Transmission Date: 20090719
  Serious: Yes (Hospitalization, Disabling)
  Sender: FDA-Public Use
  Company Number: 2009S1000709

PATIENT
  Age: 35 Year
  Sex: Male

DRUGS (2)
  1. TRAZODONE HCL [Suspect]
     Indication: SLEEP DISORDER
     Dosage: 150 MG; DAILY
  2. ACENOCOUMARL [Concomitant]

REACTIONS (6)
  - AMPUTATION OF PENIS [None]
  - INTERNATIONAL NORMALISED RATIO INCREASED [None]
  - ISCHAEMIA [None]
  - PENILE NECROSIS [None]
  - PRIAPISM [None]
  - VENOUS THROMBOSIS [None]
